FAERS Safety Report 10794276 (Version 2)
Quarter: 2017Q1

REPORT INFORMATION
  Report Type: Report from Study
  Country: None (occurrence: ES)
  Receive Date: 20150213
  Receipt Date: 20170216
  Transmission Date: 20170428
  Serious: Yes (Death, Hospitalization)
  Sender: FDA-Public Use
  Company Number: ES-ABBVIE-15P-144-1347094-00

PATIENT
  Sex: Male

DRUGS (3)
  1. SINEMET PLUS RETARD [Concomitant]
     Indication: PARKINSON^S DISEASE
     Route: 048
     Dates: start: 20160401
  2. DUODOPA [Suspect]
     Active Substance: CARBIDOPA\LEVODOPA
     Indication: PARKINSON^S DISEASE
     Dosage: 1600 MG /16 H
     Route: 050
     Dates: start: 20130219
  3. SINEMET [Concomitant]
     Active Substance: CARBIDOPA\LEVODOPA
     Indication: PARKINSON^S DISEASE

REACTIONS (4)
  - Lip and/or oral cavity cancer [Fatal]
  - Bone cancer [Fatal]
  - Neoplasm malignant [Fatal]
  - Metastases to bone [Fatal]

NARRATIVE: CASE EVENT DATE: 2015
